FAERS Safety Report 19847201 (Version 1)
Quarter: 2021Q3

REPORT INFORMATION
  Report Type: Report from Study
  Country: CN (occurrence: CN)
  Receive Date: 20210917
  Receipt Date: 20210917
  Transmission Date: 20211014
  Serious: Yes (Death, Other)
  Sender: FDA-Public Use
  Company Number: CN-PFIZER INC-202101041655

PATIENT

DRUGS (4)
  1. APATINIB [Suspect]
     Active Substance: APATINIB
     Indication: ADENOCARCINOMA GASTRIC
     Dosage: 500 MG, 1X/DAY CONTINUOUSLY
  2. TS?1 [Suspect]
     Active Substance: GIMERACIL\OTERACIL\TEGAFUR
     Indication: ADENOCARCINOMA GASTRIC
     Dosage: 80 MG/M2, DAILY, (FOR 14 DAYS, FOLLOWED BY 7 DAYS^ OFF)
  3. PACLITAXEL. [Suspect]
     Active Substance: PACLITAXEL
     Indication: ADENOCARCINOMA GASTRIC
     Dosage: 130 MG/M2, CYCLIC, (DAY 1 AS A 2 H INFUSION)
     Route: 042
  4. PACLITAXEL. [Suspect]
     Active Substance: PACLITAXEL
     Dosage: 60 MG/M2, CYCLIC, ON DAY 1 ON SCHEDULE
     Route: 042

REACTIONS (3)
  - Infection [Fatal]
  - Myelosuppression [Fatal]
  - Cardiac failure [Fatal]
